FAERS Safety Report 6272671-9 (Version None)
Quarter: 2009Q3

REPORT INFORMATION
  Report Type: 
  Country: None (occurrence: None)
  Receive Date: 20090717
  Receipt Date: 20090709
  Transmission Date: 20100115
  Serious: Yes (Life-Threatening, Hospitalization, Disabling)
  Sender: FDA-Public Use
  Company Number: VE-ABBOTT-09P-178-0584499-00

PATIENT
  Age: 45 Year
  Sex: Male
  Weight: 135 kg

DRUGS (1)
  1. SEVOFLURANE [Suspect]
     Indication: MAINTENANCE OF ANAESTHESIA
     Dosage: 50-50% AIR/02
     Route: 055
     Dates: start: 20090617, end: 20090617

REACTIONS (4)
  - CENTRAL NERVOUS SYSTEM LESION [None]
  - CONVULSION [None]
  - LOSS OF CONSCIOUSNESS [None]
  - NEUROLOGICAL SYMPTOM [None]
